FAERS Safety Report 11211352 (Version 1)
Quarter: 2015Q2

REPORT INFORMATION
  Report Type: Spontaneous
  Country: US (occurrence: None)
  Receive Date: 20150619
  Receipt Date: 20150619
  Transmission Date: 20150821
  Serious: Yes (Disabling, Other)
  Sender: FDA-Public Use
  Company Number: None

PATIENT
  Age: 40 Year
  Sex: Female
  Weight: 65.77 kg

DRUGS (6)
  1. EFFEXOR [Suspect]
     Active Substance: VENLAFAXINE HYDROCHLORIDE
     Indication: ANXIETY
     Dosage: TAKEN BY MOUTH
     Dates: start: 20021115, end: 20050531
  2. ALEVE [Concomitant]
     Active Substance: NAPROXEN SODIUM
  3. TRAMADOL [Concomitant]
     Active Substance: TRAMADOL
  4. EFFEXOR [Suspect]
     Active Substance: VENLAFAXINE HYDROCHLORIDE
     Indication: DEPRESSION
     Dosage: TAKEN BY MOUTH
     Dates: start: 20021115, end: 20050531
  5. SYNTHROID [Concomitant]
     Active Substance: LEVOTHYROXINE SODIUM
  6. TRAZODONE [Suspect]
     Active Substance: TRAZODONE HYDROCHLORIDE
     Indication: INSOMNIA
     Dosage: TAKEN BY MOUTH
     Dates: start: 20021213, end: 20050531

REACTIONS (9)
  - Panic attack [None]
  - Anger [None]
  - Stress [None]
  - Paranoia [None]
  - Hallucination, visual [None]
  - Insomnia [None]
  - Memory impairment [None]
  - Job dissatisfaction [None]
  - Confusional state [None]

NARRATIVE: CASE EVENT DATE: 20021115
